FAERS Safety Report 21447483 (Version 2)
Quarter: 2022Q4

REPORT INFORMATION
  Report Type: Spontaneous
  Country: RU (occurrence: RU)
  Receive Date: 20221012
  Receipt Date: 20221120
  Transmission Date: 20230113
  Serious: Yes (Life-Threatening)
  Sender: FDA-Public Use
  Company Number: RU-NOVARTISPH-NVSC2022RU229624

PATIENT
  Sex: Female

DRUGS (2)
  1. AMOXICILLIN [Suspect]
     Active Substance: AMOXICILLIN
     Indication: Product used for unknown indication
     Dosage: 1 DOSAGE FORM
     Route: 048
     Dates: start: 20220916
  2. AMOXICILLIN [Suspect]
     Active Substance: AMOXICILLIN
     Dosage: 0.5 DOSAGE FORM (1/2 TABLET)
     Route: 048

REACTIONS (8)
  - Feeling abnormal [Unknown]
  - Body temperature increased [Unknown]
  - Cold sweat [Unknown]
  - Asthenia [Unknown]
  - Peripheral coldness [Unknown]
  - Vomiting [Unknown]
  - Diarrhoea [Unknown]
  - Wrong technique in product usage process [Unknown]

NARRATIVE: CASE EVENT DATE: 20220916
